FAERS Safety Report 22126752 (Version 1)
Quarter: 2023Q1

REPORT INFORMATION
  Report Type: Spontaneous
  Country: CN (occurrence: CN)
  Receive Date: 20230322
  Receipt Date: 20230322
  Transmission Date: 20230417
  Serious: Yes (Other)
  Sender: FDA-Public Use
  Company Number: CN-SA-SAC20230320000722

PATIENT
  Age: 66 Year
  Sex: Female

DRUGS (3)
  1. DOCETAXEL [Suspect]
     Active Substance: DOCETAXEL
     Indication: Breast cancer
     Dosage: 115 MG, QD
     Route: 041
     Dates: start: 20230220, end: 20230221
  2. TRASTUZUMAB [Suspect]
     Active Substance: TRASTUZUMAB
     Indication: Breast cancer female
     Dosage: 440 MG, QD
     Route: 041
     Dates: start: 20230220, end: 20230220
  3. PERTUZUMAB [Suspect]
     Active Substance: PERTUZUMAB
     Indication: Breast cancer female
     Dosage: 840 MG, QD
     Route: 041
     Dates: start: 20230220, end: 20230220

REACTIONS (8)
  - Mitral valve incompetence [Recovered/Resolved]
  - Asphyxia [Recovering/Resolving]
  - Myocardial injury [Recovered/Resolved]
  - Cardiac failure congestive [Recovered/Resolved]
  - Brain natriuretic peptide increased [Recovered/Resolved]
  - Polyuria [Unknown]
  - Palpitations [Recovered/Resolved]
  - Chest discomfort [Recovered/Resolved]

NARRATIVE: CASE EVENT DATE: 20230222
